FAERS Safety Report 14986939 (Version 7)
Quarter: 2019Q2

REPORT INFORMATION
  Report Type: Report from Study
  Country: JP (occurrence: JP)
  Receive Date: 20180608
  Receipt Date: 20190530
  Transmission Date: 20190711
  Serious: Yes (Disabling, Other)
  Sender: FDA-Public Use
  Company Number: JP-BEH-2018091330

PATIENT
  Age: 51 Year
  Sex: Male
  Weight: 62 kg

DRUGS (9)
  1. PLAVIX [Concomitant]
     Active Substance: CLOPIDOGREL BISULFATE
     Indication: CEREBRAL INFARCTION
  2. WARFARIN [Concomitant]
     Active Substance: WARFARIN
     Indication: CEREBRAL INFARCTION
     Dosage: 1 MG, UNK
     Route: 048
     Dates: start: 20180324
  3. ASPIRIN. [Concomitant]
     Active Substance: ASPIRIN
     Indication: ARTIFICIAL HEART IMPLANT
     Route: 048
  4. ASPIRIN. [Concomitant]
     Active Substance: ASPIRIN
     Indication: CEREBRAL INFARCTION
  5. BERIPLEX P/N [Suspect]
     Active Substance: COAGULATION FACTOR IX HUMAN\COAGULATION FACTOR VII HUMAN\COAGULATION FACTOR X HUMAN\PROTEIN C\PROTEIN S HUMAN\PROTHROMBIN
     Indication: HAEMORRHAGE
     Dosage: 1500 IU, UNK
     Route: 042
     Dates: start: 20180320
  6. PLAVIX [Concomitant]
     Active Substance: CLOPIDOGREL BISULFATE
     Indication: ARTIFICIAL HEART IMPLANT
     Route: 048
  7. FRESH FROZEN PLASMA [Concomitant]
     Active Substance: HUMAN PLASMA
     Dosage: 2 UNITS
     Route: 065
     Dates: start: 20180321
  8. FRESH FROZEN PLASMA [Concomitant]
     Active Substance: HUMAN PLASMA
     Dosage: 2 UNITS
     Route: 065
     Dates: start: 20180326
  9. WARFARIN [Concomitant]
     Active Substance: WARFARIN
     Indication: ARTIFICIAL HEART IMPLANT
     Dosage: 3 MG, UNK
     Route: 048

REACTIONS (7)
  - Altered state of consciousness [Recovered/Resolved with Sequelae]
  - Cerebral infarction [Recovered/Resolved with Sequelae]
  - Haemorrhagic infarction [Unknown]
  - Subarachnoid haemorrhage [Unknown]
  - Paresis [Recovered/Resolved with Sequelae]
  - Mobility decreased [Recovered/Resolved with Sequelae]
  - Somnolence [Recovered/Resolved with Sequelae]

NARRATIVE: CASE EVENT DATE: 20180323
